FAERS Safety Report 15350024 (Version 4)
Quarter: 2019Q1

REPORT INFORMATION
  Report Type: Spontaneous
  Country: US (occurrence: US)
  Receive Date: 20180904
  Receipt Date: 20190117
  Transmission Date: 20190417
  Serious: No
  Sender: FDA-Public Use
  Company Number: US-BRISTOL-MYERS SQUIBB COMPANY-BMS-2018-082136

PATIENT
  Age: 71 Year
  Sex: Female
  Weight: 106.5 kg

DRUGS (1)
  1. ORENCIA [Suspect]
     Active Substance: ABATACEPT
     Indication: RHEUMATOID ARTHRITIS
     Dosage: 125 MG, QWK
     Route: 058
     Dates: start: 20180729

REACTIONS (2)
  - Circumstance or information capable of leading to medication error [Unknown]
  - Infection [Unknown]

NARRATIVE: CASE EVENT DATE: 20180807
